FAERS Safety Report 7583492-9 (Version None)
Quarter: 2011Q2

REPORT INFORMATION
  Report Type: 
  Country: None (occurrence: None)
  Receive Date: 20110630
  Receipt Date: 20110620
  Transmission Date: 20111010
  Serious: Yes (Hospitalization)
  Sender: FDA-Public Use
  Company Number: DE-ROCHE-768876

PATIENT
  Sex: Female
  Weight: 20 kg

DRUGS (15)
  1. TOCILIZUMAB [Suspect]
     Dosage: FORM: INFUSION, LAST DOSE 13 OCT 2009, INTERRUPTED FOR VISIT 28, STARTING DOSE:12MG/KG
     Route: 042
     Dates: start: 20090120
  2. TOCILIZUMAB [Suspect]
     Dosage: LAST DOSE PRIOR TO SAE 06 JULY 2010
     Route: 042
  3. IBUPROFEN [Concomitant]
  4. IBUPROFEN [Concomitant]
     Dates: start: 20110328
  5. PREDNISOLONE [Concomitant]
     Dates: start: 20080302
  6. TOCILIZUMAB [Suspect]
     Dosage: DOSE: 204
     Route: 042
     Dates: start: 20091013
  7. METHOTREXATE [Suspect]
     Route: 065
     Dates: end: 20110315
  8. TOCILIZUMAB [Suspect]
     Dosage: DOSE: 208.8
     Route: 042
     Dates: start: 20090915
  9. TOCILIZUMAB [Suspect]
     Dosage: DOSE: 207.6
     Route: 042
     Dates: start: 20091027
  10. PREDNISOLONE [Concomitant]
  11. FOLIC ACID [Concomitant]
     Dates: start: 20080518
  12. TOCILIZUMAB [Suspect]
     Dosage: DOSE: 206.8
     Route: 042
     Dates: start: 20090929
  13. TOCILIZUMAB [Suspect]
     Dosage: FORM: INFUSION.DATE OF LAST DOSE PRIOR TO SAE:28 MARCH 2011
     Route: 042
     Dates: start: 20110330
  14. BLINDED TOCILIZUMAB [Suspect]
     Route: 042
     Dates: start: 20081027
  15. LEFLUNOMIDE [Suspect]
     Route: 065
     Dates: end: 20110329

REACTIONS (1)
  - HISTIOCYTOSIS HAEMATOPHAGIC [None]
